FAERS Safety Report 9547650 (Version 1)
Quarter: 2013Q2

REPORT INFORMATION
  Report Type: Spontaneous
  Country: US (occurrence: None)
  Receive Date: 20130606
  Receipt Date: 20130606
  Transmission Date: 20140414
  Serious: Yes (Other)
  Sender: FDA-Public Use
  Company Number: 163-POMAL-13043518

PATIENT
  Age: 66 Year
  Sex: Female

DRUGS (4)
  1. POMALYST [Suspect]
     Indication: PLASMA CELL MYELOMA
     Dosage: 2 MG, 28 IN 28 D, PO
     Route: 048
     Dates: start: 20130403
  2. VITAMIN B COMPLEX ( B-KOMPLEX ^ LECIVA^) ( UNKNOWN) [Concomitant]
  3. BIOTIN ( BIOTIN) ( UNKNOWN) [Concomitant]
  4. ONE DAILY FOR WOMEN ( ALL OTHER THERAPEUTIC PRODUCTS) ( UNKNOWN) [Concomitant]

REACTIONS (1)
  - Bronchitis [None]
